FAERS Safety Report 9930802 (Version 2)
Quarter: 2014Q1

REPORT INFORMATION
  Report Type: Spontaneous
  Country: US (occurrence: US)
  Receive Date: 20140227
  Receipt Date: 20140227
  Transmission Date: 20141002
  Serious: Yes (Other)
  Sender: FDA-Public Use
  Company Number: US-AMGEN-USASP2014001399

PATIENT
  Age: 51 Year
  Sex: Female

DRUGS (1)
  1. ENBREL [Suspect]
     Indication: PSORIASIS
     Dosage: UNK, QWK
     Route: 065
     Dates: start: 20131122, end: 201312

REACTIONS (2)
  - Lower respiratory tract infection [Not Recovered/Not Resolved]
  - Nasopharyngitis [Unknown]
